FAERS Safety Report 4930503-2 (Version None)
Quarter: 2006Q1

REPORT INFORMATION
  Report Type: 
  Country: None (occurrence: None)
  Receive Date: 20060302
  Receipt Date: 20050825
  Transmission Date: 20060701
  Serious: Yes (Hospitalization, Disabling)
  Sender: FDA-Public Use
  Company Number: US-MERCK-0508USA04296

PATIENT
  Age: 78 Year
  Sex: Female

DRUGS (1)
  1. VIOXX [Suspect]
     Route: 048

REACTIONS (6)
  - CEREBRAL INFARCTION [None]
  - COLITIS [None]
  - HYPOVOLAEMIA [None]
  - RENAL FAILURE [None]
  - URINARY RETENTION [None]
  - URINARY TRACT INFECTION [None]
